FAERS Safety Report 8531170-1 (Version None)
Quarter: 2012Q3

REPORT INFORMATION
  Report Type: 
  Country: None (occurrence: None)
  Receive Date: 20120723
  Receipt Date: 20120712
  Transmission Date: 20120928
  Serious: Yes (Hospitalization, Other)
  Sender: FDA-Public Use
  Company Number: US-ELI_LILLY_AND_COMPANY-US201207003827

PATIENT
  Age: 16 Year
  Sex: Male

DRUGS (1)
  1. HUMATROPE [Suspect]
     Dosage: 2.7 MG, QD
     Dates: start: 20081201, end: 20120401

REACTIONS (3)
  - WRONG TECHNIQUE IN DRUG USAGE PROCESS [None]
  - CARCINOID TUMOUR PULMONARY [None]
  - TYPE 1 DIABETES MELLITUS [None]
